FAERS Safety Report 4853404-7 (Version None)
Quarter: 2005Q4

REPORT INFORMATION
  Report Type: 
  Country: None (occurrence: None)
  Receive Date: 20051130
  Receipt Date: 20051018
  Transmission Date: 20060501
  Serious: No
  Sender: FDA-Public Use
  Company Number: WAES 0510USA07637

PATIENT
  Age: 40 Year
  Sex: Female

DRUGS (2)
  1. ZETIA [Suspect]
     Indication: BLOOD CHOLESTEROL INCREASED
     Dosage: 10 MG/DAILY/PO
     Route: 048
     Dates: start: 20050920, end: 20051011
  2. ZYRTEC [Concomitant]

REACTIONS (2)
  - MUSCLE SPASMS [None]
  - MYOPATHY [None]
